FAERS Safety Report 13404891 (Version 2)
Quarter: 2020Q2

REPORT INFORMATION
  Report Type: Report from Study
  Country: AU (occurrence: AU)
  Receive Date: 20170405
  Receipt Date: 20200515
  Transmission Date: 20200713
  Serious: Yes (Other)
  Sender: FDA-Public Use
  Company Number: AU-JNJFOC-20170332872

PATIENT
  Age: 62 Year
  Sex: Female

DRUGS (18)
  1. SIMPONI [Suspect]
     Active Substance: GOLIMUMAB
     Indication: ANKYLOSING SPONDYLITIS
     Route: 058
  2. QUINATE                            /00032104/ [Concomitant]
  3. TRAMADOL. [Concomitant]
     Active Substance: TRAMADOL
  4. THYROXIN [Concomitant]
     Active Substance: LEVOTHYROXINE
  5. ALPRAX [Concomitant]
  6. CELEBREX [Concomitant]
     Active Substance: CELECOXIB
  7. NEXIUM [Concomitant]
     Active Substance: ESOMEPRAZOLE MAGNESIUM
  8. PARACETAMOL OSTEO [Concomitant]
  9. VENTOLIN [Concomitant]
     Active Substance: ALBUTEROL SULFATE
  10. RAMIPRIL. [Concomitant]
     Active Substance: RAMIPRIL
  11. METFORMIN [Concomitant]
     Active Substance: METFORMIN HYDROCHLORIDE
  12. LYRICA [Concomitant]
     Active Substance: PREGABALIN
  13. ROSUVASTATIN. [Concomitant]
     Active Substance: ROSUVASTATIN
  14. PROCHLORPERAZINE. [Concomitant]
     Active Substance: PROCHLORPERAZINE
  15. DULOXETINE. [Concomitant]
     Active Substance: DULOXETINE
  16. SERETIDE [Concomitant]
     Active Substance: FLUTICASONE PROPIONATE\SALMETEROL XINAFOATE
  17. SPIRIVA [Concomitant]
     Active Substance: TIOTROPIUM BROMIDE MONOHYDRATE
  18. MELATONIN [Concomitant]
     Active Substance: MELATONIN

REACTIONS (3)
  - Spinal operation [Unknown]
  - Chest X-ray abnormal [Unknown]
  - Lower respiratory tract infection [Not Recovered/Not Resolved]

NARRATIVE: CASE EVENT DATE: 201612
